FAERS Safety Report 6004262-9 (Version None)
Quarter: 2008Q4

REPORT INFORMATION
  Report Type: 
  Country: None (occurrence: None)
  Receive Date: 20081216
  Receipt Date: 20081205
  Transmission Date: 20090506
  Serious: Yes (Hospitalization, Other)
  Sender: FDA-Public Use
  Company Number: BR-NOVOPROD-282137

PATIENT
  Age: 41 Year
  Sex: Female
  Weight: 53 kg

DRUGS (3)
  1. NOVOLIN N [Suspect]
     Indication: TYPE 2 DIABETES MELLITUS
     Dosage: 22 IU, QD
     Dates: start: 19940101, end: 20081204
  2. METFORMIN HCL [Concomitant]
     Indication: DIABETES MELLITUS
     Dosage: 2550 MG, QD
     Route: 048
     Dates: start: 20040101
  3. CIPROFLOXACIN HCL [Concomitant]
     Dosage: 2 TAB, QD
     Route: 048
     Dates: start: 20081204

REACTIONS (6)
  - ABDOMINAL PAIN UPPER [None]
  - HEADACHE [None]
  - MALAISE [None]
  - PYREXIA [None]
  - SYNCOPE [None]
  - URINE ANALYSIS ABNORMAL [None]
